FAERS Safety Report 6419086-8 (Version None)
Quarter: 2009Q4

REPORT INFORMATION
  Report Type: 
  Country: None (occurrence: None)
  Receive Date: 20091028
  Receipt Date: 20091028
  Transmission Date: 20100525
  Serious: Yes (Hospitalization)
  Sender: FDA-Public Use
  Company Number: None

PATIENT
  Sex: Female
  Weight: 22.6 kg

DRUGS (10)
  1. PEG L-ASPARAGINASE [Suspect]
     Indication: ACUTE LYMPHOCYTIC LEUKAEMIA
     Dosage: 1875 IU AND 1925 IU ONCE IM, A TOTAL OF 2 DOSES
     Route: 030
     Dates: start: 20090614, end: 20090925
  2. PREDNISONE [Concomitant]
  3. VINCRISTINE IVP [Concomitant]
  4. PEG-ASP IM [Concomitant]
  5. IFOSFAMIDE [Concomitant]
  6. IT MTX [Concomitant]
  7. MERCAPTOPURINE [Concomitant]
  8. IV MTX -HD- [Concomitant]
  9. DEXAMETHASONE [Concomitant]
  10. DAUNOMYCIN [Concomitant]

REACTIONS (8)
  - COUGH [None]
  - DEHYDRATION [None]
  - FATIGUE [None]
  - HYPERAMMONAEMIA [None]
  - LACTIC ACIDOSIS [None]
  - NAUSEA [None]
  - VOMITING [None]
  - WEIGHT DECREASED [None]
